FAERS Safety Report 6383251-9 (Version None)
Quarter: 2009Q3

REPORT INFORMATION
  Report Type: 
  Country: None (occurrence: None)
  Receive Date: 20090929
  Receipt Date: 20090918
  Transmission Date: 20100115
  Serious: Yes (Disabling)
  Sender: FDA-Public Use
  Company Number: DSA_41671_2009

PATIENT
  Sex: Female

DRUGS (4)
  1. XENAZINE [Suspect]
     Indication: PARKINSON'S DISEASE
     Dosage: (12.5 MG BID)
     Dates: start: 20090902, end: 20090903
  2. ENABLEX /01760401/ [Concomitant]
  3. ALEVE [Concomitant]
  4. PHENYLEPHRINE HYDROCHLORIDE [Concomitant]

REACTIONS (2)
  - CRYING [None]
  - MUSCULOSKELETAL STIFFNESS [None]
